FAERS Safety Report 5142676-X (Version None)
Quarter: 2006Q4

REPORT INFORMATION
  Report Type: 
  Country: None (occurrence: None)
  Receive Date: 20061027
  Receipt Date: 20061018
  Transmission Date: 20070319
  Serious: Yes (Hospitalization)
  Sender: FDA-Public Use
  Company Number: US200605005397

PATIENT
  Age: 43 Year
  Sex: Female
  Weight: 83.9 kg

DRUGS (6)
  1. ZYPREXA [Suspect]
     Dosage: 20 MG
     Dates: start: 20031201, end: 20050801
  2. RISPERIDONE [Concomitant]
  3. LITHIUM CARBONATE [Concomitant]
  4. BUPROPION HCL [Concomitant]
  5. CARVEDILOL [Concomitant]
  6. METOPROLOL TARTRATE [Concomitant]

REACTIONS (4)
  - CEREBROVASCULAR ACCIDENT [None]
  - DIABETES MELLITUS [None]
  - HYPERTENSION [None]
  - VASCULAR BYPASS GRAFT [None]
